FAERS Safety Report 5256893-1 (Version None)
Quarter: 2007Q1

REPORT INFORMATION
  Report Type: 
  Country: None (occurrence: None)
  Receive Date: 20070306
  Receipt Date: 20070224
  Transmission Date: 20070707
  Serious: Yes (Death)
  Sender: FDA-Public Use
  Company Number: US-ABBOTT-03P-163-0213967-00

PATIENT
  Age: 51 Year
  Sex: Male

DRUGS (3)
  1. DILAUDID [Suspect]
     Indication: NEPHROLITHIASIS
  2. INHALER [Concomitant]
     Indication: ASTHMA
     Route: 055
  3. INHALER [Concomitant]
     Indication: BRONCHITIS

REACTIONS (1)
  - LARYNGEAL OEDEMA [None]
